FAERS Safety Report 9916941 (Version 3)
Quarter: 2014Q2

REPORT INFORMATION
  Report Type: Spontaneous
  Country: CA (occurrence: CA)
  Receive Date: 20140221
  Receipt Date: 20140416
  Transmission Date: 20141212
  Serious: Yes (Other)
  Sender: FDA-Public Use
  Company Number: CA-GLAXOSMITHKLINE-A1044213A

PATIENT
  Age: 50 Year
  Sex: Female
  Weight: 60 kg

DRUGS (9)
  1. BENLYSTA [Suspect]
     Indication: SYSTEMIC LUPUS ERYTHEMATOSUS
     Dosage: 600MG SEE DOSAGE TEXT
     Route: 042
     Dates: start: 20131001
  2. PREDNISONE [Concomitant]
     Indication: SYSTEMIC LUPUS ERYTHEMATOSUS
     Route: 048
     Dates: start: 20140207
  3. PLAQUENIL [Concomitant]
  4. METHOTREXATE [Concomitant]
     Indication: SYSTEMIC LUPUS ERYTHEMATOSUS
     Dosage: 200MG WEEKLY
     Route: 048
     Dates: start: 20130802
  5. OMEPRAZOLE [Concomitant]
     Dosage: 20MG PER DAY
     Route: 048
  6. MELOXICAM [Concomitant]
     Indication: PAIN
     Dosage: 15MG PER DAY
     Route: 048
     Dates: start: 20130801
  7. FOLIC ACID [Concomitant]
     Dosage: 5MG PER DAY
     Route: 048
  8. VENLAFAXINE [Concomitant]
     Indication: DEPRESSION
     Dosage: 75MG PER DAY
     Route: 048
     Dates: start: 20130712
  9. LEFLUNOMIDE [Concomitant]
     Indication: SYSTEMIC LUPUS ERYTHEMATOSUS
     Dosage: 10MG PER DAY
     Route: 048
     Dates: start: 20130708

REACTIONS (16)
  - Headache [Recovered/Resolved]
  - Nausea [Recovered/Resolved]
  - Influenza [Unknown]
  - Fatigue [Unknown]
  - Influenza [Unknown]
  - Sinus congestion [Unknown]
  - Chills [Unknown]
  - Systemic lupus erythematosus [Recovering/Resolving]
  - Arthralgia [Recovering/Resolving]
  - Joint swelling [Recovering/Resolving]
  - Musculoskeletal stiffness [Recovering/Resolving]
  - Back pain [Recovering/Resolving]
  - Neck pain [Recovering/Resolving]
  - Dyspnoea [Recovered/Resolved]
  - Myalgia [Unknown]
  - Swelling [Unknown]
